FAERS Safety Report 23624938 (Version 1)
Quarter: 2024Q1

REPORT INFORMATION
  Report Type: Spontaneous
  Country: US (occurrence: US)
  Receive Date: 20240313
  Receipt Date: 20240313
  Transmission Date: 20240410
  Serious: Yes (Hospitalization, Other)
  Sender: FDA-Public Use
  Company Number: US-GTI-000180

PATIENT
  Age: 46 Year
  Sex: Female

DRUGS (7)
  1. PREDNISONE [Suspect]
     Active Substance: PREDNISONE
     Indication: Chronic graft versus host disease in liver
     Route: 065
  2. LETERMOVIR [Concomitant]
     Active Substance: LETERMOVIR
     Indication: Infection prophylaxis
     Route: 065
  3. ISAVUCONAZONIUM [Concomitant]
     Active Substance: ISAVUCONAZONIUM
     Indication: Infection prophylaxis
     Route: 065
  4. LEVOFLOXACIN [Concomitant]
     Active Substance: LEVOFLOXACIN
     Indication: Infection prophylaxis
     Route: 065
  5. CYCLOPHOSPHAMIDE [Concomitant]
     Active Substance: CYCLOPHOSPHAMIDE
     Indication: Prophylaxis against graft versus host disease
     Route: 065
  6. TACROLIMUS [Suspect]
     Active Substance: TACROLIMUS
     Indication: Chronic graft versus host disease in liver
     Route: 065
  7. RUXOLITINIB [Suspect]
     Active Substance: RUXOLITINIB
     Indication: Chronic graft versus host disease in liver
     Route: 065

REACTIONS (10)
  - Chronic graft versus host disease in liver [Recovered/Resolved]
  - Steatohepatitis [Recovered/Resolved]
  - Cholestasis [Recovered/Resolved]
  - Drug resistance [Recovered/Resolved]
  - Disease progression [Recovered/Resolved]
  - Therapeutic response decreased [Recovered/Resolved]
  - Rebound effect [Recovered/Resolved]
  - Hepatic fibrosis [Recovered/Resolved]
  - Portal tract inflammation [Recovered/Resolved]
  - Biliary obstruction [Recovered/Resolved]
